FAERS Safety Report 5793332-6 (Version None)
Quarter: 2008Q2

REPORT INFORMATION
  Report Type: 
  Country: None (occurrence: None)
  Receive Date: 20080627
  Receipt Date: 20080623
  Transmission Date: 20081010
  Serious: Yes (Other)
  Sender: FDA-Public Use
  Company Number: A0734354A

PATIENT
  Age: 24 Year
  Sex: Female

DRUGS (4)
  1. BUPROPION SR [Suspect]
     Indication: DEPRESSION
     Route: 048
     Dates: start: 20050401, end: 20080101
  2. CYCLOBENZAPRINE HCL [Suspect]
  3. ALCOHOL [Suspect]
  4. BIRTH CONTROL [Concomitant]

REACTIONS (16)
  - AMNESIA [None]
  - ANOREXIA [None]
  - ASTHENIA [None]
  - CONVULSION [None]
  - DEPRESSION [None]
  - GRAND MAL CONVULSION [None]
  - HEADACHE [None]
  - HYPERHIDROSIS [None]
  - INTENTIONAL OVERDOSE [None]
  - OVERDOSE [None]
  - STRESS [None]
  - TEMPOROMANDIBULAR JOINT SYNDROME [None]
  - TINNITUS [None]
  - WEIGHT DECREASED [None]
  - WEIGHT INCREASED [None]
  - WEIGHT LOSS POOR [None]
